FAERS Safety Report 25979954 (Version 2)
Quarter: 2025Q4

REPORT INFORMATION
  Report Type: Report from Study
  Country: JP (occurrence: JP)
  Receive Date: 20251030
  Receipt Date: 20251125
  Transmission Date: 20260117
  Serious: Yes (Hospitalization)
  Sender: EISAI
  Company Number: JP-Eisai-202509203_LEQ_P_1

PATIENT
  Age: 86 Year
  Sex: Female

DRUGS (1)
  1. LEQEMBI [Suspect]
     Active Substance: LECANEMAB-IRMB
     Indication: Product used for unknown indication
     Dosage: DOSE AND FREQUENCY: UNKNOWN
     Route: 041

REACTIONS (2)
  - Infusion related reaction [Recovered/Resolved]
  - Wheezing [Recovered/Resolved]

NARRATIVE: CASE EVENT DATE: 20251015
